FAERS Safety Report 12121251 (Version 1)
Quarter: 2016Q1

REPORT INFORMATION
  Report Type: Spontaneous
  Country: US (occurrence: US)
  Receive Date: 20160226
  Receipt Date: 20160226
  Transmission Date: 20160526
  Serious: No
  Sender: FDA-Public Use
  Company Number: US-ALLERGAN-1423896US

PATIENT
  Age: 85 Year
  Sex: Male

DRUGS (1)
  1. REFRESH OPTIVE [Suspect]
     Active Substance: CARBOXYMETHYLCELLULOSE SODIUM\GLYCERIN
     Indication: DRY EYE
     Dosage: 2 GTT, BID
     Route: 047
     Dates: start: 201409

REACTIONS (6)
  - Visual acuity reduced [Unknown]
  - Eye irritation [Unknown]
  - Therapeutic response decreased [Unknown]
  - Instillation site pain [Unknown]
  - Eye discharge [Unknown]
  - Ocular hyperaemia [Not Recovered/Not Resolved]
